FAERS Safety Report 4802077-8 (Version None)
Quarter: 2005Q4

REPORT INFORMATION
  Report Type: 
  Country: None (occurrence: None)
  Receive Date: 20051011
  Receipt Date: 20050926
  Transmission Date: 20060501
  Serious: Yes (Disabling, Other)
  Sender: FDA-Public Use
  Company Number: 2005113118

PATIENT
  Sex: Female

DRUGS (1)
  1. DETROL LA [Suspect]
     Indication: ILL-DEFINED DISORDER
     Dosage: 4 MG (4 MG, 1 IN 1 D), ORAL
     Route: 048

REACTIONS (3)
  - DRUG INEFFECTIVE [None]
  - LEG AMPUTATION [None]
  - SKIN ULCER [None]
